FAERS Safety Report 13277136 (Version 1)
Quarter: 2017Q1

REPORT INFORMATION
  Report Type: Report from Study
  Country: GB (occurrence: GB)
  Receive Date: 20170228
  Receipt Date: 20170228
  Transmission Date: 20170428
  Serious: Yes (Other)
  Sender: FDA-Public Use
  Company Number: GB-PFIZER INC-2017080854

PATIENT

DRUGS (1)
  1. KETAMINE HCL [Suspect]
     Active Substance: KETAMINE HYDROCHLORIDE
     Indication: DEPRESSION
     Dosage: 0.5 MG/KG, UNK (DILUTED IN 40 ML OF SALINE AND ADMINISTERED INTRAVENOUSLY OVER 40 MINUTES)
     Route: 041

REACTIONS (1)
  - Suicidal ideation [Unknown]
